FAERS Safety Report 25945460 (Version 3)
Quarter: 2025Q4

REPORT INFORMATION
  Report Type: Report from Study
  Country: CA (occurrence: CA)
  Receive Date: 20251021
  Receipt Date: 20251113
  Transmission Date: 20260117
  Serious: Yes (Hospitalization, Other)
  Sender: GILEAD
  Company Number: CA-GILEAD-2025-0731860

PATIENT
  Sex: Female

DRUGS (1)
  1. AXICABTAGENE CILOLEUCEL [Suspect]
     Active Substance: AXICABTAGENE CILOLEUCEL
     Indication: Product used for unknown indication
     Dosage: UNK
     Route: 065
     Dates: start: 20250909

REACTIONS (5)
  - Mental disorder [Not Recovered/Not Resolved]
  - Pyrexia [Unknown]
  - Delirium [Unknown]
  - Sleep disorder [Not Recovered/Not Resolved]
  - Confusional state [Unknown]
